FAERS Safety Report 8809626 (Version 1)
Quarter: 2012Q4

REPORT INFORMATION
  Report Type: 
  Country: US (occurrence: US)
  Receive Date: 20120926
  Receipt Date: 20120926
  Transmission Date: 20130627
  Serious: Yes (Other)
  Sender: FDA-Public Use
  Company Number: US-ROCHE-1104362

PATIENT
  Sex: Male

DRUGS (5)
  1. AVASTIN [Suspect]
     Indication: RENAL CANCER
     Route: 065
  2. AVASTIN [Suspect]
     Indication: HAEMATOLOGICAL MALIGNANCY
  3. SORAFENIB [Concomitant]
  4. PREDNISONE [Concomitant]
  5. TEMSIROLIMUS [Concomitant]

REACTIONS (7)
  - Disease progression [Unknown]
  - Neck mass [Unknown]
  - Arthralgia [Unknown]
  - Pelvic pain [Unknown]
  - Night sweats [Unknown]
  - Hypoaesthesia [Unknown]
  - Pain [Unknown]
